FAERS Safety Report 9273548 (Version 1)
Quarter: 2013Q2

REPORT INFORMATION
  Report Type: Spontaneous
  Country: US (occurrence: US)
  Receive Date: 20130506
  Receipt Date: 20130506
  Transmission Date: 20140414
  Serious: No
  Sender: FDA-Public Use
  Company Number: US-AMGEN-USASP2013028404

PATIENT
  Age: 62 Year
  Sex: Female

DRUGS (18)
  1. ENBREL [Suspect]
     Indication: RHEUMATOID ARTHRITIS
     Dosage: 50 MG, QWK
     Route: 058
     Dates: start: 20120911, end: 20130419
  2. EXFORGE [Concomitant]
     Dosage: 10-160 MG, UNK
  3. METHOTREXATE [Concomitant]
     Dosage: 2.5 MG, UNK
  4. FOLIC ACID [Concomitant]
     Dosage: 1 MG, UNK
  5. MELOXICAM [Concomitant]
     Dosage: 15 MG, UNK
  6. PROMETHAZINE [Concomitant]
     Dosage: 25 MG, UNK
  7. LEVOTHYROXIN [Concomitant]
     Dosage: 100 MUG, UNK
  8. LABETALOL [Concomitant]
     Dosage: 100 MG, UNK
  9. LOVASTATIN [Concomitant]
     Dosage: 20 MG, UNK
  10. BUMETANIDE [Concomitant]
     Dosage: 2 MG, UNK
  11. VITAMIN C                          /00008001/ [Concomitant]
     Dosage: 500 MG, UNK
  12. VITAMIN B 12 [Concomitant]
     Dosage: 1000 MUG, UNK
  13. MULTIVITAMINS, PLAIN [Concomitant]
     Dosage: UNK
  14. FISH OIL [Concomitant]
     Dosage: UNK
  15. CINNAMON OIL [Concomitant]
     Dosage: 500 MG, UNK
  16. ASPIRIN [Concomitant]
     Dosage: 81 MG, UNK
  17. MELATONIN [Concomitant]
     Dosage: 3 MG, UNK
  18. BUTALBITAL W/CAFFEINE/PARACETAMOL [Concomitant]
     Dosage: UNK

REACTIONS (6)
  - Arthralgia [Unknown]
  - Joint swelling [Unknown]
  - Drug ineffective [Not Recovered/Not Resolved]
  - Pain in extremity [Not Recovered/Not Resolved]
  - Musculoskeletal pain [Not Recovered/Not Resolved]
  - Oedema peripheral [Not Recovered/Not Resolved]
